FAERS Safety Report 6407150-9 (Version None)
Quarter: 2009Q4

REPORT INFORMATION
  Report Type: 
  Country: None (occurrence: None)
  Receive Date: 20091020
  Receipt Date: 20091012
  Transmission Date: 20100525
  Serious: Yes (Hospitalization, Other)
  Sender: FDA-Public Use
  Company Number: FR-ROXANE LABORATORIES, INC.-2009-RO-01055RO

PATIENT
  Age: 55 Year
  Sex: Female

DRUGS (6)
  1. LITHIUM CARBONATE [Suspect]
     Route: 048
  2. DIGOXIN [Suspect]
     Indication: ATRIAL FIBRILLATION
  3. GLUCOSE SALINE SOLUTION [Concomitant]
     Indication: FLUID REPLACEMENT
     Route: 042
  4. GLUCOSE SALINE SOLUTION [Concomitant]
     Indication: DRUG TOXICITY
  5. SALINE [Concomitant]
     Indication: FLUID REPLACEMENT
     Route: 042
  6. SALINE [Concomitant]
     Indication: DRUG TOXICITY

REACTIONS (13)
  - AGITATION [None]
  - ATRIOVENTRICULAR BLOCK FIRST DEGREE [None]
  - BRADYCARDIA [None]
  - DEHYDRATION [None]
  - DRUG TOXICITY [None]
  - DYSARTHRIA [None]
  - GASTROENTERITIS [None]
  - HYPERREFLEXIA [None]
  - HYPERTONIA [None]
  - MYDRIASIS [None]
  - RENAL FAILURE ACUTE [None]
  - SINOATRIAL BLOCK [None]
  - TREMOR [None]
